FAERS Safety Report 4407404-1 (Version None)
Quarter: 2004Q3

REPORT INFORMATION
  Report Type: 
  Country: None (occurrence: None)
  Receive Date: 20040721
  Receipt Date: 20040706
  Transmission Date: 20050211
  Serious: Yes (Hospitalization, Other)
  Sender: FDA-Public Use
  Company Number: 200993

PATIENT
  Age: 53 Year
  Sex: Female
  Weight: 63.5036 kg

DRUGS (4)
  1. AVONEX [Suspect]
     Indication: MULTIPLE SCLEROSIS
     Dosage: 30 MCG QW IM
     Route: 030
     Dates: start: 19960101, end: 20030701
  2. ZANAFLEX [Concomitant]
  3. OXYBUTYNIN [Concomitant]
  4. RITALIN [Concomitant]

REACTIONS (5)
  - BENIGN NEOPLASM OF THYROID GLAND [None]
  - BRAIN NEOPLASM BENIGN [None]
  - CELLULITIS [None]
  - CONVULSION [None]
  - INFLUENZA LIKE ILLNESS [None]
